FAERS Safety Report 5578231-7 (Version None)
Quarter: 2007Q4

REPORT INFORMATION
  Report Type: 
  Country: None (occurrence: None)
  Receive Date: 20071231
  Receipt Date: 20071220
  Transmission Date: 20080405
  Serious: Yes (Hospitalization, Other)
  Sender: FDA-Public Use
  Company Number: US-PFIZER INC-2007044843

PATIENT
  Sex: Female

DRUGS (2)
  1. CELEBREX [Suspect]
  2. BEXTRA [Suspect]
     Dates: start: 20000131, end: 20031130

REACTIONS (4)
  - CEREBROVASCULAR ACCIDENT [None]
  - CHEST PAIN [None]
  - DEEP VEIN THROMBOSIS [None]
  - DEPRESSION [None]
